FAERS Safety Report 5659967-6 (Version None)
Quarter: 2008Q1

REPORT INFORMATION
  Report Type: 
  Country: None (occurrence: None)
  Receive Date: 20080311
  Receipt Date: 20080227
  Transmission Date: 20080703
  Serious: Yes (Hospitalization)
  Sender: FDA-Public Use
  Company Number: DE-ROCHE-501023

PATIENT
  Age: 48 Year
  Sex: Male
  Weight: 91 kg

DRUGS (9)
  1. RIBAVIRIN [Suspect]
     Route: 048
     Dates: start: 20061017
  2. RIBAVIRIN [Suspect]
     Route: 048
     Dates: end: 20080212
  3. PEG-INTERFERON ALFA 2A (RO 25-8310) [Suspect]
     Route: 058
     Dates: start: 20061017, end: 20080205
  4. PK-MERZ [Suspect]
     Route: 048
     Dates: start: 20061017, end: 20080212
  5. LEVOTHYROXINE SODIUM [Concomitant]
     Dates: start: 20040101
  6. BISOPROLOL FUMARATE [Concomitant]
     Dates: start: 20040101
  7. SPIRONOLACTONE [Concomitant]
     Dates: start: 20050101
  8. HYDROCHLOROTHIAZIDE [Concomitant]
     Dates: start: 20050101
  9. GLYBURIDE [Concomitant]
     Dates: start: 20060101

REACTIONS (5)
  - ABDOMINAL WALL ABSCESS [None]
  - ANAEMIA [None]
  - PNEUMONIA [None]
  - SYNCOPE [None]
  - THROMBOCYTOPENIA [None]
